FAERS Safety Report 18557260 (Version 1)
Quarter: 2020Q4

REPORT INFORMATION
  Report Type: Other
  Country: IE (occurrence: IE)
  Receive Date: 20201129
  Receipt Date: 20201129
  Transmission Date: 20210114
  Serious: Yes (Life-Threatening, Hospitalization)
  Sender: FDA-Public Use
  Company Number: IE-EMD SERONO-9200615

PATIENT
  Age: 74 Year
  Sex: Female

DRUGS (3)
  1. VENLAFAXINE [Concomitant]
     Active Substance: VENLAFAXINE HYDROCHLORIDE
     Indication: PRODUCT USED FOR UNKNOWN INDICATION
  2. ZOLPIDEM [Concomitant]
     Active Substance: ZOLPIDEM TARTRATE
     Indication: PRODUCT USED FOR UNKNOWN INDICATION
  3. METFORMIN [Suspect]
     Active Substance: METFORMIN HYDROCHLORIDE
     Indication: TYPE 2 DIABETES MELLITUS

REACTIONS (3)
  - Acute kidney injury [Unknown]
  - Generalised tonic-clonic seizure [Recovered/Resolved]
  - Lactic acidosis [Unknown]
